FAERS Safety Report 25578488 (Version 1)
Quarter: 2025Q3

REPORT INFORMATION
  Report Type: Spontaneous
  Country: EU (occurrence: EU)
  Receive Date: 20250718
  Receipt Date: 20250718
  Transmission Date: 20251021
  Serious: Yes (Death)
  Sender: FRESENIUS KABI
  Company Number: None

PATIENT
  Age: 64 Year
  Sex: Male

DRUGS (3)
  1. LINEZOLID [Suspect]
     Active Substance: LINEZOLID
     Indication: Pancreatic abscess
     Route: 042
     Dates: start: 20250503, end: 20250508
  2. PIPERACILLIN AND TAZOBACTAM [Suspect]
     Active Substance: PIPERACILLIN SODIUM\TAZOBACTAM SODIUM
     Indication: Pancreatic abscess
     Route: 042
     Dates: start: 20250502, end: 20250503
  3. MEROPENEM [Concomitant]
     Active Substance: MEROPENEM
     Indication: Pancreatic abscess
     Route: 042
     Dates: start: 20250529, end: 20250604

REACTIONS (1)
  - Toxic epidermal necrolysis [Fatal]

NARRATIVE: CASE EVENT DATE: 20250602
